FAERS Safety Report 18303866 (Version 1)
Quarter: 2020Q3

REPORT INFORMATION
  Report Type: Spontaneous
  Country: US (occurrence: US)
  Receive Date: 20200923
  Receipt Date: 20200923
  Transmission Date: 20201103
  Serious: Yes (Hospitalization, Other)
  Sender: FDA-Public Use
  Company Number: US-JNJFOC-A-NJ2019-193555

PATIENT
  Age: 50 Year
  Sex: Female
  Weight: 54.42 kg

DRUGS (7)
  1. OPSUMIT [Suspect]
     Active Substance: MACITENTAN
     Indication: PULMONARY ARTERIAL HYPERTENSION
     Dosage: 10 MG, QD
     Route: 048
  2. REMODULIN [Suspect]
     Active Substance: TREPROSTINIL
  3. TYVASO [Suspect]
     Active Substance: TREPROSTINIL
     Dosage: 2 BREATHS, QID
     Route: 055
     Dates: start: 20190716, end: 2020
  4. OPSUMIT [Suspect]
     Active Substance: MACITENTAN
     Route: 048
  5. TYVASO [Suspect]
     Active Substance: TREPROSTINIL
     Indication: PRODUCT USED FOR UNKNOWN INDICATION
     Dosage: 1 BREATHS, QID
     Route: 055
  6. TYVASO [Suspect]
     Active Substance: TREPROSTINIL
     Dosage: 3 BREATHS, QID
     Route: 055
     Dates: start: 20190716
  7. SILDENAFIL CITRATE. [Concomitant]
     Active Substance: SILDENAFIL CITRATE

REACTIONS (15)
  - Feeling jittery [Unknown]
  - Chest discomfort [Unknown]
  - Headache [Unknown]
  - Fatigue [Unknown]
  - Hypersomnia [Unknown]
  - Hospitalisation [Unknown]
  - Productive cough [Unknown]
  - Flushing [Unknown]
  - Nasopharyngitis [Unknown]
  - Bronchitis [Unknown]
  - Nausea [Unknown]
  - Hypotension [Unknown]
  - Condition aggravated [Unknown]
  - Dyspnoea [Unknown]
  - Somnolence [Unknown]

NARRATIVE: CASE EVENT DATE: 20190718
